FAERS Safety Report 16475316 (Version 1)
Quarter: 2019Q2

REPORT INFORMATION
  Report Type: Spontaneous
  Country: RS (occurrence: RS)
  Receive Date: 20190625
  Receipt Date: 20190625
  Transmission Date: 20190711
  Serious: Yes (Other)
  Sender: FDA-Public Use
  Company Number: RS-009507513-1906SRB008561

PATIENT
  Age: 5 Year
  Sex: Male
  Weight: 21 kg

DRUGS (1)
  1. SINGULAIR [Suspect]
     Active Substance: MONTELUKAST SODIUM
     Indication: ASTHMA
     Dosage: 4MG, 1 PER DAY
     Route: 048
     Dates: start: 20181031, end: 20181130

REACTIONS (2)
  - Behaviour disorder [Recovered/Resolved]
  - Sleep disorder [Recovered/Resolved]

NARRATIVE: CASE EVENT DATE: 20181130
